FAERS Safety Report 18104171 (Version 1)
Quarter: 2020Q3

REPORT INFORMATION
  Report Type: Spontaneous
  Country: US (occurrence: US)
  Receive Date: 20200803
  Receipt Date: 20200803
  Transmission Date: 20201103
  Serious: No
  Sender: FDA-Public Use
  Company Number: US-HORIZON-PRO-0179-2020

PATIENT
  Age: 9 Year
  Sex: Female

DRUGS (1)
  1. PROCYSBI [Suspect]
     Active Substance: CYSTEAMINE BITARTRATE
     Indication: CYSTINOSIS
     Dosage: 7X75MG AM AND 8X75MG PM
     Route: 048

REACTIONS (3)
  - Vomiting [Unknown]
  - Nausea [Unknown]
  - Product dose omission issue [Unknown]

NARRATIVE: CASE EVENT DATE: 202006
